FAERS Safety Report 5966854-2 (Version None)
Quarter: 2008Q4

REPORT INFORMATION
  Report Type: 
  Country: None (occurrence: None)
  Receive Date: 20081125
  Receipt Date: 20081114
  Transmission Date: 20090506
  Serious: Yes (Hospitalization)
  Sender: FDA-Public Use
  Company Number: JP-GENENTECH-249127

PATIENT
  Sex: Male

DRUGS (10)
  1. BEVACIZUMAB [Suspect]
     Indication: RECTAL CANCER RECURRENT
     Dosage: 5 MG/KG, QD
     Route: 041
     Dates: start: 20070816, end: 20070904
  2. IRINOTECAN HYDROCHLORIDE [Suspect]
     Indication: RECTAL CANCER RECURRENT
     Dosage: 180 MG/M2, QD
     Route: 041
     Dates: start: 20070816, end: 20070904
  3. FLUOROURACIL [Suspect]
     Indication: RECTAL CANCER RECURRENT
     Dosage: 400 MG/M2, QD
     Dates: start: 20070816, end: 20070906
  4. ISOVORIN [Suspect]
     Indication: RECTAL CANCER RECURRENT
     Dosage: 200 MG/M2, QD
     Route: 041
     Dates: start: 20070816, end: 20070904
  5. RABEPRAZOLE SODIUM [Concomitant]
     Indication: DRUG USE FOR UNKNOWN INDICATION
     Dosage: UNK
     Dates: start: 20070816
  6. LOXOPROFEN [Concomitant]
     Indication: DRUG USE FOR UNKNOWN INDICATION
     Dosage: UNK
     Dates: start: 20070816
  7. OXYCONTIN [Concomitant]
     Indication: DRUG USE FOR UNKNOWN INDICATION
     Dosage: UNK
     Dates: start: 20070816
  8. KYTRIL [Concomitant]
     Indication: DRUG USE FOR UNKNOWN INDICATION
     Dosage: UNK
     Dates: start: 20070816, end: 20070904
  9. DEXAMETHASONE SODIUM PHOSPHATE [Concomitant]
     Indication: DRUG USE FOR UNKNOWN INDICATION
     Dosage: UNK
     Dates: start: 20070816, end: 20070904
  10. DECADRON [Concomitant]
     Indication: DRUG USE FOR UNKNOWN INDICATION
     Dosage: UNK
     Dates: start: 20070817, end: 20070904

REACTIONS (2)
  - ANAEMIA [None]
  - EPISTAXIS [None]
